FAERS Safety Report 12277605 (Version 4)
Quarter: 2016Q3

REPORT INFORMATION
  Report Type: Spontaneous
  Country: US (occurrence: US)
  Receive Date: 20160418
  Receipt Date: 20160705
  Transmission Date: 20161109
  Serious: Yes (Hospitalization)
  Sender: FDA-Public Use
  Company Number: US-JNJFOC-20160410108

PATIENT
  Age: 63 Year
  Sex: Female
  Weight: 90.72 kg

DRUGS (7)
  1. XARELTO [Suspect]
     Active Substance: RIVAROXABAN
     Indication: DEEP VEIN THROMBOSIS
     Route: 048
  2. XARELTO [Suspect]
     Active Substance: RIVAROXABAN
     Indication: DEEP VEIN THROMBOSIS
     Route: 048
  3. NIACIN. [Concomitant]
     Active Substance: NIACIN
     Indication: DIABETES MELLITUS
     Route: 065
     Dates: start: 2012
  4. BIOTIN [Concomitant]
     Active Substance: BIOTIN
     Indication: DIABETES MELLITUS
     Route: 065
     Dates: start: 2012
  5. METFORMIN [Concomitant]
     Active Substance: METFORMIN HYDROCHLORIDE
     Indication: TYPE 2 DIABETES MELLITUS
     Route: 065
     Dates: start: 20100809
  6. CHROMIUM [Concomitant]
     Active Substance: CHROMIC CHLORIDE\CHROMIUM
     Indication: DIABETES MELLITUS
     Route: 065
     Dates: start: 2012
  7. ASPIRIN. [Concomitant]
     Active Substance: ASPIRIN
     Indication: CARDIAC DISORDER
     Route: 065
     Dates: start: 1985

REACTIONS (10)
  - Speech disorder [Recovered/Resolved]
  - Pulmonary mass [Unknown]
  - Musculoskeletal pain [Recovered/Resolved]
  - Mental impairment [Recovered/Resolved]
  - Headache [Unknown]
  - Paraesthesia [Unknown]
  - Angina pectoris [Recovering/Resolving]
  - Drug intolerance [Recovered/Resolved]
  - Cerebrovascular accident [Recovered/Resolved]
  - Hypoaesthesia [Unknown]

NARRATIVE: CASE EVENT DATE: 20160317
